FAERS Safety Report 6556363-4 (Version None)
Quarter: 2010Q1

REPORT INFORMATION
  Report Type: 
  Country: None (occurrence: None)
  Receive Date: 20100128
  Receipt Date: 20100122
  Transmission Date: 20100710
  Serious: Yes (Other)
  Sender: FDA-Public Use
  Company Number: US-SANOFI-AVENTIS-2010SA004602

PATIENT
  Age: 76 Year
  Sex: Male

DRUGS (9)
  1. MULTAQ [Suspect]
     Route: 048
     Dates: start: 20100114
  2. ASPIRIN [Concomitant]
  3. LISINOPRIL [Concomitant]
  4. FLOMAX [Concomitant]
  5. CARDIZEM [Concomitant]
  6. ALLEGRA [Concomitant]
  7. WARFARIN SODIUM [Concomitant]
  8. TOPROL-XL [Concomitant]
  9. CRESTOR [Concomitant]

REACTIONS (3)
  - ABDOMINAL DISTENSION [None]
  - DIASTOLIC DYSFUNCTION [None]
  - WEIGHT INCREASED [None]
